FAERS Safety Report 9586888 (Version 1)
Quarter: 2013Q4

REPORT INFORMATION
  Report Type: Spontaneous
  Country: US (occurrence: US)
  Receive Date: 20131003
  Receipt Date: 20131003
  Transmission Date: 20140711
  Serious: Yes (Other)
  Sender: FDA-Public Use
  Company Number: PHEH2013US020505

PATIENT
  Sex: Male

DRUGS (8)
  1. DIOVAN [Suspect]
     Dosage: UNK UKN, QD
     Route: 048
     Dates: end: 20130331
  2. SIMVASTATIN [Concomitant]
     Dosage: 20 MG, UNK
  3. HCT [Concomitant]
     Dosage: 25 MG, UNK
  4. AMBIEN [Concomitant]
     Indication: SLEEP DISORDER
     Dosage: UNK UKN, UNK
  5. OCUVITE                            /01053801/ [Concomitant]
     Dosage: UNK UKN, UNK
  6. VIT B COMPLEX [Concomitant]
     Dosage: UNK UKN, UNK
  7. VIT D [Concomitant]
     Dosage: UNK UKN, UNK
  8. BUPROPION HCL [Concomitant]
     Dosage: UNK UKN, UNK

REACTIONS (1)
  - Nephropathy [Unknown]
